FAERS Safety Report 11239409 (Version 1)
Quarter: 2015Q3

REPORT INFORMATION
  Report Type: Spontaneous
  Country: CA (occurrence: None)
  Receive Date: 20150701
  Receipt Date: 20150701
  Transmission Date: 20151125
  Serious: Yes (Other)
  Sender: FDA-Public Use
  Company Number: 2015FE02139

PATIENT
  Age: 32 Year
  Sex: Female

DRUGS (2)
  1. LETROZOLE (LETROZOLE) [Suspect]
     Active Substance: LETROZOLE
     Indication: ANOVULATORY CYCLE
  2. UNKNOWN (PROGESTERONE) UNKNOWN [Suspect]
     Active Substance: PROGESTERONE
     Indication: MENSTRUAL DISORDER
     Route: 067

REACTIONS (4)
  - Preterm premature rupture of membranes [None]
  - Abortion spontaneous [None]
  - Off label use [None]
  - Maternal exposure during pregnancy [None]
